FAERS Safety Report 13976216 (Version 12)
Quarter: 2020Q1

REPORT INFORMATION
  Report Type: Report from Study
  Country: ES (occurrence: ES)
  Receive Date: 20170915
  Receipt Date: 20200214
  Transmission Date: 20200409
  Serious: Yes (Death, Hospitalization, Other)
  Sender: FDA-Public Use
  Company Number: ES-BRISTOL-MYERS SQUIBB COMPANY-BMS-2017-077567

PATIENT
  Age: 57 Year
  Sex: Female
  Weight: 55 kg

DRUGS (2)
  1. NIVOLUMAB [Suspect]
     Active Substance: NIVOLUMAB
     Indication: ADENOCARCINOMA OF COLON
     Dosage: 170.7 MILLIGRAM
     Route: 042
     Dates: start: 20170412
  2. IPILIMUMAB [Suspect]
     Active Substance: IPILIMUMAB
     Indication: ADENOCARCINOMA OF COLON
     Dosage: 56.9 MILLIGRAM
     Route: 042
     Dates: start: 20170412

REACTIONS (3)
  - Hyponatraemia [Recovered/Resolved]
  - Septic shock [Not Recovered/Not Resolved]
  - Respiratory failure [Fatal]

NARRATIVE: CASE EVENT DATE: 20170827
